FAERS Safety Report 10881725 (Version 2)
Quarter: 2015Q1

REPORT INFORMATION
  Report Type: Spontaneous
  Country: CA (occurrence: CA)
  Receive Date: 20150303
  Receipt Date: 20150311
  Transmission Date: 20150721
  Serious: Yes (Hospitalization, Disabling, Other)
  Sender: FDA-Public Use
  Company Number: CA-GSKJP-KK201304146GSK1550188002

PATIENT
  Age: 18 Year
  Sex: Female
  Weight: 105 kg

DRUGS (16)
  1. CELLCEPT [Concomitant]
     Active Substance: MYCOPHENOLATE MOFETIL\MYCOPHENOLATE MOFETIL HYDROCHLORIDE
     Indication: PRODUCT USED FOR UNKNOWN INDICATION
     Dosage: UNK
  2. BENLYSTA [Suspect]
     Active Substance: BELIMUMAB
     Dosage: UNK
     Dates: start: 20130206
  3. BENLYSTA [Suspect]
     Active Substance: BELIMUMAB
     Dosage: 1000 MG, 0, 2, 4 WK; THEN EVERY 4 WKS
     Dates: start: 20130206
  4. BENLYSTA [Suspect]
     Active Substance: BELIMUMAB
     Dosage: 1000 MG, Q4 WEEKS
     Route: 042
     Dates: start: 20130206
  5. CELLCEPT [Concomitant]
     Active Substance: MYCOPHENOLATE MOFETIL\MYCOPHENOLATE MOFETIL HYDROCHLORIDE
     Dosage: 1000 MG, QD
     Route: 048
  6. BENLYSTA [Suspect]
     Active Substance: BELIMUMAB
     Indication: SYSTEMIC LUPUS ERYTHEMATOSUS
     Dosage: 923 MG, 0, 2, 4 WK; THEN EVERY 4 WKS
     Route: 042
     Dates: start: 20130206
  7. BENLYSTA [Suspect]
     Active Substance: BELIMUMAB
     Dosage: 920 MG, EVERY 4 WEEKS
     Route: 042
     Dates: start: 201402
  8. CORTISONE [Suspect]
     Active Substance: CORTISONE\HYDROCORTISONE
     Indication: PRODUCT USED FOR UNKNOWN INDICATION
     Dosage: INJECTION TO BOTH CHEEKS
     Route: 042
     Dates: start: 20130610
  9. COUMADIN [Concomitant]
     Active Substance: WARFARIN SODIUM
     Indication: PRODUCT USED FOR UNKNOWN INDICATION
  10. PREDNISONE. [Concomitant]
     Active Substance: PREDNISONE
     Dosage: 7.5 MG, QD
     Route: 048
  11. BENLYSTA [Suspect]
     Active Substance: BELIMUMAB
     Dosage: 920 MG, UNK
     Route: 042
  12. BENADRYL [Concomitant]
     Active Substance: DIPHENHYDRAMINE HYDROCHLORIDE
     Indication: PRODUCT USED FOR UNKNOWN INDICATION
  13. PREDNISONE. [Concomitant]
     Active Substance: PREDNISONE
     Indication: PRODUCT USED FOR UNKNOWN INDICATION
     Dosage: UNK
  14. TYLENOL [Concomitant]
     Active Substance: ACETAMINOPHEN
     Indication: PRODUCT USED FOR UNKNOWN INDICATION
  15. BENLYSTA [Suspect]
     Active Substance: BELIMUMAB
     Dosage: UNK
     Dates: start: 20130206
  16. ANTIBIOTICS [Concomitant]
     Active Substance: UNSPECIFIED INGREDIENT
     Indication: PRODUCT USED FOR UNKNOWN INDICATION

REACTIONS (28)
  - Systemic lupus erythematosus [Unknown]
  - Discomfort [Unknown]
  - Visual impairment [Unknown]
  - Tooth fracture [Recovered/Resolved]
  - Malaise [Unknown]
  - Infection [Recovered/Resolved]
  - Ill-defined disorder [Unknown]
  - Pain [Unknown]
  - Pneumonia [Unknown]
  - Visual acuity reduced [Unknown]
  - Diarrhoea [Recovered/Resolved]
  - Dyspnoea [Unknown]
  - Contusion [Unknown]
  - Musculoskeletal pain [Recovered/Resolved]
  - Emotional disorder [Unknown]
  - Fatigue [Unknown]
  - Biopsy kidney [Recovered/Resolved]
  - Pyrexia [Unknown]
  - Headache [Recovering/Resolving]
  - Influenza [Recovered/Resolved]
  - Pharyngitis [Unknown]
  - Drug ineffective [Unknown]
  - Depressed mood [Unknown]
  - Vomiting [Recovered/Resolved]
  - Middle insomnia [Unknown]
  - Back pain [Recovered/Resolved]
  - Somnolence [Not Recovered/Not Resolved]
  - Nasopharyngitis [Unknown]

NARRATIVE: CASE EVENT DATE: 201302
